FAERS Safety Report 10557990 (Version 1)
Quarter: 2014Q4

REPORT INFORMATION
  Report Type: Spontaneous
  Country: JP (occurrence: JP)
  Receive Date: 20141031
  Receipt Date: 20141031
  Transmission Date: 20150529
  Serious: Yes (Hospitalization)
  Sender: FDA-Public Use
  Company Number: PHHY2014JP141774

PATIENT
  Age: 33 Year
  Sex: Female

DRUGS (3)
  1. PREDONINE [Suspect]
     Active Substance: PREDNISOLONE\PREDNISOLONE ACETATE\PREDNISOLONE SODIUM SUCCINATE
     Indication: IMMUNOSUPPRESSION
     Dosage: 5 MG, UNK
     Route: 048
     Dates: start: 20051214, end: 20130925
  2. IMURAN [Suspect]
     Active Substance: AZATHIOPRINE
     Indication: IMMUNOSUPPRESSION
     Dosage: 100 MG, UNK
     Route: 048
     Dates: start: 20051214, end: 20130925
  3. NEORAL [Suspect]
     Active Substance: CYCLOSPORINE
     Indication: RENAL TRANSPLANT
     Dosage: 200 MG, QD
     Route: 048
     Dates: start: 20051214, end: 20131225

REACTIONS (10)
  - Asthenia [Unknown]
  - Pre-eclampsia [Recovered/Resolved]
  - IgA nephropathy [Unknown]
  - Pancytopenia [Unknown]
  - Blood creatinine increased [Unknown]
  - Pneumonia [Recovered/Resolved]
  - Maternal exposure during pregnancy [Unknown]
  - Gestational hypertension [Unknown]
  - Stomatitis [Unknown]
  - Renal impairment [Not Recovered/Not Resolved]

NARRATIVE: CASE EVENT DATE: 20130220
